FAERS Safety Report 6785165-9 (Version None)
Quarter: 2010Q2

REPORT INFORMATION
  Report Type: 
  Country: None (occurrence: None)
  Receive Date: 20100618
  Receipt Date: 20100607
  Transmission Date: 20101027
  Serious: Yes (Hospitalization)
  Sender: FDA-Public Use
  Company Number: TPH-00266

PATIENT
  Sex: Female

DRUGS (1)
  1. TRIQUILAR [Suspect]
     Indication: CONTRACEPTION
     Dosage: DF, ORAL
     Route: 048

REACTIONS (2)
  - DIABETES MELLITUS [None]
  - WEIGHT DECREASED [None]
